FAERS Safety Report 8444626-7 (Version None)
Quarter: 2012Q2

REPORT INFORMATION
  Report Type: 
  Country: None (occurrence: None)
  Receive Date: 20120618
  Receipt Date: 20120612
  Transmission Date: 20120825
  Serious: Yes (Other)
  Sender: FDA-Public Use
  Company Number: US-PFIZER INC-2012112423

PATIENT
  Sex: Female
  Weight: 56.236 kg

DRUGS (5)
  1. LYRICA [Suspect]
     Indication: GAIT DISTURBANCE
  2. CELEBREX [Suspect]
     Indication: ARTHRITIS
     Dosage: 200 MG, 2X/DAY
     Route: 048
  3. CELEBREX [Suspect]
     Indication: OSTEOPOROSIS
  4. LYRICA [Suspect]
     Indication: SCIATIC NERVE NEUROPATHY
  5. LYRICA [Suspect]
     Indication: INTERVERTEBRAL DISC DISORDER
     Dosage: 50 MG, 2X/DAY
     Route: 048
     Dates: start: 20120505, end: 20120501

REACTIONS (6)
  - FEELING ABNORMAL [None]
  - DIZZINESS [None]
  - ABDOMINAL PAIN UPPER [None]
  - ACTIVITIES OF DAILY LIVING IMPAIRED [None]
  - VISION BLURRED [None]
  - DRUG INEFFECTIVE [None]
